FAERS Safety Report 4840094-2 (Version None)
Quarter: 2005Q4

REPORT INFORMATION
  Report Type: 
  Country: None (occurrence: None)
  Receive Date: 20051125
  Receipt Date: 20051111
  Transmission Date: 20060501
  Serious: Yes (Hospitalization)
  Sender: FDA-Public Use
  Company Number: 2005P1000377

PATIENT
  Age: 75 Year
  Sex: Female
  Weight: 56 kg

DRUGS (19)
  1. RETEPLASE (RETEPLASE) [Suspect]
     Indication: ACUTE MYOCARDIAL INFARCTION
     Dosage: IV
     Route: 042
     Dates: start: 20041001
  2. ABCIXIMAB (ABCIXIMAB) [Suspect]
     Indication: ACUTE MYOCARDIAL INFARCTION
     Dosage: IV
     Route: 042
     Dates: start: 20041001
  3. ASPIRIN [Concomitant]
  4. METOPROLOL [Concomitant]
  5. CLOPIDOGREL BISULFATE [Concomitant]
  6. PERINDOPRIL [Concomitant]
  7. ATORVASTATIN CALCIUM [Concomitant]
  8. FUROSEMIDE [Concomitant]
  9. ASCORUTIN [Concomitant]
  10. GUAIFENESIN [Concomitant]
  11. ALL OTHER THERAPEUTIC PRODUCTS [Concomitant]
  12. GLICLAZIDE [Concomitant]
  13. GLIBENCLAMIDE [Concomitant]
  14. DILTIAZEM HCL [Concomitant]
  15. ISOSORBIDE MONONITRATE [Concomitant]
  16. ACETYLSALICYLATE LYSINE [Concomitant]
  17. FENTANYL [Concomitant]
  18. ESMOLOL HCL [Concomitant]
  19. ISOSORBIDE DINITRATE [Concomitant]

REACTIONS (3)
  - ANAEMIA [None]
  - BLOOD COUNT ABNORMAL [None]
  - CORONARY ARTERY STENOSIS [None]
